FAERS Safety Report 21404499 (Version 1)
Quarter: 2022Q4

REPORT INFORMATION
  Report Type: Spontaneous
  Country: US (occurrence: US)
  Receive Date: 20221003
  Receipt Date: 20221003
  Transmission Date: 20230113
  Serious: Yes (Other)
  Sender: FDA-Public Use
  Company Number: US-BRISTOL-MYERS SQUIBB COMPANY-2022-114577

PATIENT
  Age: 62 Year
  Sex: Male

DRUGS (2)
  1. ELIQUIS [Suspect]
     Active Substance: APIXABAN
     Indication: Thrombosis
     Dosage: DOSE : UNAVAILABLE;     FREQ : (2) TABLETS TWICE A DAY FOR 7 DAYS THEN (1) TABLET TWICE A DAY
     Route: 048
     Dates: start: 202209
  2. ELIQUIS [Suspect]
     Active Substance: APIXABAN
     Indication: Pulmonary embolism

REACTIONS (6)
  - Dyspnoea [Unknown]
  - Dizziness [Unknown]
  - Syncope [Unknown]
  - Flushing [Unknown]
  - Malaise [Unknown]
  - Cough [Unknown]

NARRATIVE: CASE EVENT DATE: 20220901
